FAERS Safety Report 16119841 (Version 2)
Quarter: 2019Q2

REPORT INFORMATION
  Report Type: Spontaneous
  Country: US (occurrence: US)
  Receive Date: 20190326
  Receipt Date: 20190405
  Transmission Date: 20190711
  Serious: Yes (Other)
  Sender: FDA-Public Use
  Company Number: US-MALLINCKRODT-T201901618

PATIENT
  Sex: Female
  Weight: 46 kg

DRUGS (4)
  1. BENLYSTA [Concomitant]
     Active Substance: BELIMUMAB
     Indication: RHEUMATOID ARTHRITIS
     Dosage: 463MG OVER 1 HOUR EVERY 4 WEEKS AS DIRECTED
     Route: 042
     Dates: start: 201803
  2. H.P. ACTHAR [Suspect]
     Active Substance: CORTICOTROPIN
     Indication: SYSTEMIC LUPUS ERYTHEMATOSUS
     Dosage: 80 UNITS, EVERY 72 HOURS
     Route: 058
     Dates: start: 201902
  3. BENLYSTA [Concomitant]
     Active Substance: BELIMUMAB
     Indication: SYSTEMIC LUPUS ERYTHEMATOSUS
     Dosage: 630 MG, MONTHLY (Q4W)
     Route: 065
  4. H.P. ACTHAR [Suspect]
     Active Substance: CORTICOTROPIN
     Indication: RHEUMATOID ARTHRITIS
     Dosage: 80 UNITS, EVERY 72 HOURS
     Route: 058
     Dates: start: 201901, end: 2019

REACTIONS (6)
  - Systemic lupus erythematosus [Unknown]
  - Product dose omission [Unknown]
  - Treatment noncompliance [Unknown]
  - Dyspnoea [Unknown]
  - Malaise [Unknown]
  - Infection [Unknown]

NARRATIVE: CASE EVENT DATE: 2019
